FAERS Safety Report 26160214 (Version 1)
Quarter: 2025Q4

REPORT INFORMATION
  Report Type: Report from Study
  Country: EU (occurrence: EU)
  Receive Date: 20251216
  Receipt Date: 20251216
  Transmission Date: 20260117
  Serious: Yes (Hospitalization)
  Sender: CELLTRION
  Company Number: None

PATIENT

DRUGS (6)
  1. RITUXIMAB [Suspect]
     Active Substance: RITUXIMAB
     Indication: Product used for unknown indication
     Dosage: UNK
     Route: 042
  2. ENOXAPARIN [Concomitant]
     Active Substance: ENOXAPARIN
     Dosage: 6000 UI X 2
     Route: 058
  3. ROSUVASTATIN [Concomitant]
     Active Substance: ROSUVASTATIN
     Dosage: 10 MG
     Route: 048
  4. PLAQUENIL [Concomitant]
     Active Substance: HYDROXYCHLOROQUINE SULFATE
     Dosage: 200 MG
     Route: 048
  5. OXYCONTIN [Concomitant]
     Active Substance: OXYCODONE HYDROCHLORIDE
     Dosage: 10 MG
     Route: 048
  6. ESCITALOPRAM [Concomitant]
     Active Substance: ESCITALOPRAM OXALATE
     Dosage: 20 MG
     Route: 048

REACTIONS (3)
  - Balance disorder [Recovering/Resolving]
  - Headache [Recovering/Resolving]
  - Vomiting [Recovered/Resolved]

NARRATIVE: CASE EVENT DATE: 20251025
